FAERS Safety Report 4425065-2 (Version None)
Quarter: 2004Q3

REPORT INFORMATION
  Report Type: 
  Country: None (occurrence: None)
  Receive Date: 20040811
  Receipt Date: 20040811
  Transmission Date: 20050211
  Serious: Yes (Other)
  Sender: FDA-Public Use
  Company Number: None

PATIENT
  Age: 52 Year
  Sex: Male
  Weight: 62.5964 kg

DRUGS (1)
  1. MEPRON [Suspect]
     Indication: BABESIOSIS
     Dosage: 1 TSPOON   ORAL
     Route: 048
     Dates: start: 20040706, end: 20040724

REACTIONS (1)
  - CHROMATOPSIA [None]
